FAERS Safety Report 7956592-9 (Version None)
Quarter: 2011Q4

REPORT INFORMATION
  Report Type: 
  Country: None (occurrence: None)
  Receive Date: 20111205
  Receipt Date: 20111128
  Transmission Date: 20120403
  Serious: Yes (Other)
  Sender: FDA-Public Use
  Company Number: PHEH2011US010313

PATIENT
  Sex: Female

DRUGS (10)
  1. DULCOLAX [Concomitant]
  2. ANCEF [Concomitant]
  3. ZOFRAN [Concomitant]
  4. OXYCODONE HCL [Concomitant]
  5. KEFLEX [Concomitant]
  6. DARVOCET-N 50 [Concomitant]
  7. SECONAL [Concomitant]
  8. TAMOXIFEN CITRATE [Concomitant]
  9. AREDIA [Suspect]
     Indication: METASTASES TO BONE
     Dosage: 90 MG, UNK
     Route: 042
  10. ACETAMINOPHEN [Concomitant]

REACTIONS (4)
  - OVARIAN CYST [None]
  - TUBO-OVARIAN ABSCESS [None]
  - ABDOMINAL PAIN LOWER [None]
  - PELVIC INFLAMMATORY DISEASE [None]
